FAERS Safety Report 18711570 (Version 1)
Quarter: 2021Q1

REPORT INFORMATION
  Report Type: Spontaneous
  Country: JP (occurrence: JP)
  Receive Date: 20210107
  Receipt Date: 20210107
  Transmission Date: 20210419
  Serious: Yes (Life-Threatening, Hospitalization, Other)
  Sender: FDA-Public Use
  Company Number: JP-ACCORD-213589

PATIENT
  Age: 56 Year
  Sex: Male
  Weight: 70.1 kg

DRUGS (8)
  1. ZOLPIDEM [Concomitant]
     Active Substance: ZOLPIDEM TARTRATE
     Route: 048
  2. DULOXETINE. [Concomitant]
     Active Substance: DULOXETINE
     Route: 048
  3. MAGNESIUM OXIDE. [Concomitant]
     Active Substance: MAGNESIUM OXIDE
     Route: 048
  4. AMITRIPTYLINE [Suspect]
     Active Substance: AMITRIPTYLINE
     Indication: PRODUCT USED FOR UNKNOWN INDICATION
     Dosage: STRENGTH 25 MG, RESCUE CREWS FOUND 280 EMPTY PILLS OF 25 MG AMITRIPTYLINE.
     Route: 048
  5. CHLORPROMAZINE. [Concomitant]
     Active Substance: CHLORPROMAZINE
     Route: 048
  6. NITRAZEPAM [Concomitant]
     Active Substance: NITRAZEPAM
     Route: 048
  7. TRAZODONE [Concomitant]
     Active Substance: TRAZODONE HYDROCHLORIDE
     Route: 048
  8. RABEPRAZOLE/RABEPRAZOLE SODIUM [Concomitant]
     Active Substance: RABEPRAZOLE SODIUM
     Route: 048

REACTIONS (17)
  - Ventricular extrasystoles [Not Recovered/Not Resolved]
  - Bundle branch block right [Recovering/Resolving]
  - Drug level increased [Recovering/Resolving]
  - Intentional overdose [Unknown]
  - Renal function test abnormal [Recovering/Resolving]
  - Altered state of consciousness [Recovering/Resolving]
  - Defect conduction intraventricular [Recovering/Resolving]
  - Coma [Recovering/Resolving]
  - Atrial fibrillation [Recovering/Resolving]
  - Clonus [Recovering/Resolving]
  - Liver function test increased [Recovering/Resolving]
  - Haemodynamic instability [Recovering/Resolving]
  - Shock [Recovering/Resolving]
  - Delirium [Unknown]
  - Cardio-respiratory arrest [Recovered/Resolved]
  - Electrocardiogram T wave abnormal [Recovering/Resolving]
  - Rhythm idioventricular [Recovering/Resolving]
